FAERS Safety Report 15277025 (Version 1)
Quarter: 2018Q3

REPORT INFORMATION
  Report Type: Spontaneous
  Country: RU (occurrence: RU)
  Receive Date: 20180814
  Receipt Date: 20180814
  Transmission Date: 20181010
  Serious: Yes (Other)
  Sender: FDA-Public Use
  Company Number: RU-MERCK KGAA-2053716

PATIENT

DRUGS (1)
  1. NOVOTHYROX [Suspect]
     Active Substance: LEVOTHYROXINE SODIUM
     Indication: POST PROCEDURAL HYPOTHYROIDISM

REACTIONS (7)
  - Anxiety [None]
  - Conversion disorder [None]
  - Poor quality sleep [None]
  - Agitation [None]
  - Aggression [None]
  - Maternal exposure during breast feeding [None]
  - Foetal exposure during pregnancy [Recovered/Resolved]
